FAERS Safety Report 7912680-4 (Version None)
Quarter: 2011Q4

REPORT INFORMATION
  Report Type: 
  Country: None (occurrence: None)
  Receive Date: 20111114
  Receipt Date: 20111103
  Transmission Date: 20120403
  Serious: Yes (Hospitalization, Other)
  Sender: FDA-Public Use
  Company Number: US-SANOFI-AVENTIS-2011SA073003

PATIENT
  Age: 76 Year
  Sex: Male

DRUGS (11)
  1. DIGOXIN [Concomitant]
  2. LEVAQUIN [Concomitant]
  3. SEROQUEL [Concomitant]
  4. MULTAQ [Suspect]
     Indication: ATRIAL FIBRILLATION
     Route: 048
     Dates: start: 20101214, end: 20110101
  5. NEBIVOLOL HCL [Concomitant]
  6. WARFARIN SODIUM [Concomitant]
  7. ARICEPT [Concomitant]
  8. ADVAIR DISKUS 100/50 [Concomitant]
     Dosage: I PUFF TWICE A DAILY
  9. ACIPHEX [Concomitant]
  10. WARFARIN SODIUM [Concomitant]
  11. ALBUMIN (HUMAN) [Concomitant]

REACTIONS (19)
  - DYSPNOEA [None]
  - HYPOTENSION [None]
  - ATRIAL FIBRILLATION [None]
  - BARRETT'S OESOPHAGUS [None]
  - PERITONITIS BACTERIAL [None]
  - ASCITES [None]
  - RENAL FAILURE ACUTE [None]
  - ALCOHOLIC LIVER DISEASE [None]
  - HEPATIC CIRRHOSIS [None]
  - HEPATIC ENCEPHALOPATHY [None]
  - HEPATORENAL SYNDROME [None]
  - CHEST PAIN [None]
  - RIGHT VENTRICULAR FAILURE [None]
  - EPIGASTRIC DISCOMFORT [None]
  - TREATMENT NONCOMPLIANCE [None]
  - VARICES OESOPHAGEAL [None]
  - WHITE BLOOD CELL COUNT INCREASED [None]
  - GASTRITIS [None]
  - HIATUS HERNIA [None]
